FAERS Safety Report 8516133 (Version 2)
Quarter: 2014Q3

REPORT INFORMATION
  Report Type: Spontaneous
  Country: US (occurrence: US)
  Receive Date: 20120417
  Receipt Date: 20140923
  Transmission Date: 20150326
  Serious: Yes (Other)
  Sender: FDA-Public Use
  Company Number: US-ASTRAZENECA-2011SE31196

PATIENT
  Age: 72 Year
  Sex: Female
  Weight: 45.8 kg

DRUGS (3)
  1. MEDICATION FOR BLOOD PRESSURE AND DIABETES [Concomitant]
     Indication: BLOOD PRESSURE ABNORMAL
  2. MEDICATION FOR BLOOD PRESSURE AND DIABETES [Concomitant]
     Indication: DIABETES MELLITUS
  3. NEXIUM [Suspect]
     Active Substance: ESOMEPRAZOLE MAGNESIUM
     Indication: DYSPEPSIA
     Route: 048

REACTIONS (5)
  - Ankle fracture [Unknown]
  - Influenza [Not Recovered/Not Resolved]
  - Drug dose omission [Not Recovered/Not Resolved]
  - Dyspepsia [Not Recovered/Not Resolved]
  - Off label use [Not Recovered/Not Resolved]

NARRATIVE: CASE EVENT DATE: 201101
